FAERS Safety Report 10074171 (Version 2)
Quarter: 2015Q1

REPORT INFORMATION
  Report Type: Report from Study
  Country: US (occurrence: US)
  Receive Date: 20140411
  Receipt Date: 20150320
  Transmission Date: 20150720
  Serious: Yes (Hospitalization)
  Sender: FDA-Public Use
  Company Number: US-TARO-2014P1002909

PATIENT
  Age: 55 Year
  Sex: Male
  Weight: 104.1 kg

DRUGS (12)
  1. TAMIFLU [Concomitant]
     Active Substance: OSELTAMIVIR PHOSPHATE
     Route: 048
     Dates: start: 20130128, end: 20130130
  2. FUROSEMIDE. [Concomitant]
     Active Substance: FUROSEMIDE
     Route: 048
     Dates: start: 2005
  3. DILTIAZEM [Concomitant]
     Active Substance: DILTIAZEM
  4. ALDARA [Suspect]
     Active Substance: IMIQUIMOD
     Indication: ACTINIC KERATOSIS
     Dosage: BIW
     Route: 061
     Dates: start: 20140203, end: 20140525
  5. PANTOPRAZOLE [Concomitant]
     Active Substance: PANTOPRAZOLE SODIUM
  6. WARFARIN [Concomitant]
     Active Substance: WARFARIN
     Dosage: 7.5 MG
     Dates: start: 20100907
  7. CLONIDINE. [Concomitant]
     Active Substance: CLONIDINE
     Route: 048
     Dates: start: 2005
  8. SIMVASTATIN. [Concomitant]
     Active Substance: SIMVASTATIN
  9. PRILOSEC [Concomitant]
     Active Substance: OMEPRAZOLE MAGNESIUM
     Route: 048
     Dates: start: 2010
  10. LISINOPRIL. [Concomitant]
     Active Substance: LISINOPRIL
     Route: 048
     Dates: start: 2005
  11. WARFARIN [Concomitant]
     Active Substance: WARFARIN
     Dates: start: 20100907
  12. AMLODIPINE [Concomitant]
     Active Substance: AMLODIPINE BESYLATE
     Route: 048
     Dates: start: 2005

REACTIONS (1)
  - Dysarthria [Recovered/Resolved]

NARRATIVE: CASE EVENT DATE: 20140318
